FAERS Safety Report 5940010-6 (Version None)
Quarter: 2008Q4

REPORT INFORMATION
  Report Type: 
  Country: None (occurrence: None)
  Receive Date: 20081104
  Receipt Date: 20081021
  Transmission Date: 20090506
  Serious: No
  Sender: FDA-Public Use
  Company Number: US-BAYER-200814157BCC

PATIENT
  Age: 52 Year
  Sex: Male
  Weight: 112 kg

DRUGS (2)
  1. ALEVE [Suspect]
     Indication: LOWER LIMB FRACTURE
     Dosage: TOTAL DAILY DOSE: 220 MG  UNIT DOSE: 220 MG
     Route: 048
     Dates: start: 20081021
  2. OXYCODONE HCL [Concomitant]

REACTIONS (2)
  - HYPOAESTHESIA ORAL [None]
  - PARAESTHESIA ORAL [None]
